FAERS Safety Report 24103036 (Version 1)
Quarter: 2024Q3

REPORT INFORMATION
  Report Type: Spontaneous
  Country: US (occurrence: US)
  Receive Date: 20240717
  Receipt Date: 20240717
  Transmission Date: 20241016
  Serious: No
  Sender: JOHNSON AND JOHNSON
  Company Number: US-JNJFOC-20240675377

PATIENT

DRUGS (1)
  1. MOTRIN [Suspect]
     Active Substance: IBUPROFEN
     Indication: Product used for unknown indication
     Dosage: WHOLE BOTTLE ONCE
     Route: 065

REACTIONS (2)
  - Muscle spasms [Unknown]
  - Overdose [Unknown]
